FAERS Safety Report 14607032 (Version 2)
Quarter: 2018Q2

REPORT INFORMATION
  Report Type: Spontaneous
  Country: JP (occurrence: JP)
  Receive Date: 20180307
  Receipt Date: 20180406
  Transmission Date: 20180711
  Serious: Yes (Life-Threatening, Other)
  Sender: FDA-Public Use
  Company Number: JP-BAYER-2018-042536

PATIENT
  Sex: Male

DRUGS (4)
  1. NEXAVAR [Suspect]
     Active Substance: SORAFENIB
     Indication: HEPATOCELLULAR CARCINOMA
     Dosage: 400 MG, BID
     Route: 048
     Dates: start: 20171122, end: 20180226
  2. JANUVIA [Concomitant]
     Active Substance: SITAGLIPTIN PHOSPHATE
  3. MAGMITT [Concomitant]
     Active Substance: MAGNESIUM OXIDE
  4. OLMETEC [Concomitant]
     Active Substance: OLMESARTAN MEDOXOMIL

REACTIONS (2)
  - Hepatocellular carcinoma [None]
  - Metastases to lung [Not Recovered/Not Resolved]

NARRATIVE: CASE EVENT DATE: 20180226
